FAERS Safety Report 6386271-3 (Version None)
Quarter: 2009Q3

REPORT INFORMATION
  Report Type: 
  Country: None (occurrence: None)
  Receive Date: 20090929
  Receipt Date: 20090626
  Transmission Date: 20100115
  Serious: Yes (Other)
  Sender: FDA-Public Use
  Company Number: 284307

PATIENT
  Age: 74 Year
  Sex: Female

DRUGS (4)
  1. LUCENTIS [Suspect]
     Indication: MACULAR DEGENERATION
     Dosage: 1 ML
     Dates: start: 20061106, end: 20090528
  2. AVALIDE [Concomitant]
  3. ALLEGRA [Concomitant]
  4. FOSAMAX [Concomitant]

REACTIONS (2)
  - ENDOPHTHALMITIS [None]
  - INTRAOCULAR PRESSURE INCREASED [None]
